FAERS Safety Report 4301782-X (Version None)
Quarter: 2004Q1

REPORT INFORMATION
  Report Type: 
  Country: None (occurrence: None)
  Receive Date: 20040126
  Receipt Date: 20031002
  Transmission Date: 20041129
  Serious: No
  Sender: FDA-Public Use
  Company Number: USA031048885

PATIENT
  Age: 8 Year
  Sex: Male
  Weight: 37 kg

DRUGS (1)
  1. STRATTERA [Suspect]
     Indication: ATTENTION DEFICIT/HYPERACTIVITY DISORDER
     Dosage: 25 MG/DAY

REACTIONS (5)
  - ANGER [None]
  - FIGHT IN SCHOOL [None]
  - IRRITABILITY [None]
  - MOOD SWINGS [None]
  - MYDRIASIS [None]
